FAERS Safety Report 25589073 (Version 1)
Quarter: 2025Q3

REPORT INFORMATION
  Report Type: Spontaneous
  Country: US (occurrence: US)
  Receive Date: 20250722
  Receipt Date: 20250722
  Transmission Date: 20251021
  Serious: Yes (Hospitalization)
  Sender: ROCHE
  Company Number: US-ROCHE-10000338635

PATIENT
  Sex: Male

DRUGS (2)
  1. HEMLIBRA [Suspect]
     Active Substance: EMICIZUMAB-KXWH
     Indication: Factor VIII deficiency
     Dosage: STRENGTH-30MG/ML
     Route: 058
     Dates: start: 202311
  2. ADVATE INJECTION [Concomitant]

REACTIONS (3)
  - Dehydration [Unknown]
  - Vomiting [Unknown]
  - Viral infection [Unknown]
